FAERS Safety Report 12283706 (Version 1)
Quarter: 2016Q2

REPORT INFORMATION
  Report Type: Spontaneous
  Country: US (occurrence: US)
  Receive Date: 20160419
  Receipt Date: 20160419
  Transmission Date: 20160815
  Serious: No
  Sender: FDA-Public Use
  Company Number: US-BANPHARM-20164598

PATIENT

DRUGS (1)
  1. NAPROXEN SODIUM 220 MG [Suspect]
     Active Substance: NAPROXEN SODIUM
     Indication: HYPOTONIA
     Dosage: 1 DF, QD,
     Route: 048
     Dates: start: 20151218, end: 20151223

REACTIONS (1)
  - Burning sensation mucosal [Unknown]
